FAERS Safety Report 7680340-3 (Version None)
Quarter: 2011Q3

REPORT INFORMATION
  Report Type: 
  Country: None (occurrence: None)
  Receive Date: 20110812
  Receipt Date: 20110811
  Transmission Date: 20111222
  Serious: Yes (Congenital Anomaly)
  Sender: FDA-Public Use
  Company Number: FR-VIIV HEALTHCARE LIMITED-B0699426A

PATIENT
  Sex: Female
  Weight: 3 kg

DRUGS (2)
  1. KALETRA [Suspect]
     Indication: HIV INFECTION
     Route: 064
     Dates: start: 20090320, end: 20100219
  2. COMBIVIR [Suspect]
     Indication: HIV INFECTION
     Route: 064
     Dates: start: 20090320, end: 20100219

REACTIONS (3)
  - CONGENITAL HAND MALFORMATION [None]
  - MATERNAL EXPOSURE DURING PREGNANCY [None]
  - MICRODACTYLY [None]
